FAERS Safety Report 9505852 (Version 1)
Quarter: 2013Q1

REPORT INFORMATION
  Report Type: Spontaneous
  Country: US (occurrence: None)
  Receive Date: 20130219
  Receipt Date: 20130219
  Transmission Date: 20140127
  Serious: Yes (Hospitalization)
  Sender: FDA-Public Use
  Company Number: 1201USA00154

PATIENT
  Sex: Male

DRUGS (2)
  1. ZOCOR [Suspect]
     Dosage: , ORAL
     Route: 048
  2. PRAVACHOL (PRAVASTATIN SODIUM) [Concomitant]

REACTIONS (2)
  - Atrial fibrillation [None]
  - Drug hypersensitivity [None]
